FAERS Safety Report 8614562-1 (Version None)
Quarter: 2012Q3

REPORT INFORMATION
  Report Type: 
  Country: None (occurrence: None)
  Receive Date: 20120823
  Receipt Date: 20120820
  Transmission Date: 20120928
  Serious: No
  Sender: FDA-Public Use
  Company Number: PHEH2012US013505

PATIENT
  Sex: Male

DRUGS (57)
  1. TOPIRAMATE [Concomitant]
     Dosage: 100 MG, QD
     Dates: start: 20120508
  2. TOPIRAMATE [Concomitant]
     Dosage: 100 MG, QD
     Dates: start: 20120601
  3. LOSARTAN POTASSIUM [Concomitant]
     Dosage: 1 DF, QD
     Dates: start: 20120419
  4. LOSARTAN POTASSIUM [Concomitant]
     Dosage: 1 DF, QD
     Dates: start: 20120508
  5. ATORVASTATIN [Concomitant]
     Dosage: 80 MG, QD
     Dates: start: 20120419
  6. ZOLPIDEM [Concomitant]
     Dosage: 10 MG, QD
     Dates: start: 20120322
  7. PRIMIDONE [Concomitant]
     Dosage: 250 MG, BID
     Dates: start: 20120508
  8. TOPIRAMATE [Concomitant]
     Dosage: 100 MG, QD
     Dates: start: 20120419
  9. GABAPENTIN [Concomitant]
     Dosage: 340 MG, BID
     Dates: start: 20120419
  10. METFORMIN [Concomitant]
     Dosage: 500 MG, BID
     Dates: start: 20120419
  11. LEVOTHYROXINE SODIUM [Concomitant]
     Dosage: 50 UG, QD
     Dates: start: 20120322
  12. PRIMIDONE [Concomitant]
     Dosage: 250 MG, BID
     Dates: start: 20120601
  13. TRAZODONE HYDROCHLORIDE [Concomitant]
     Dosage: 100 MG, QD
     Dates: start: 20120419
  14. BUPROPION HCL [Concomitant]
     Dosage: 300 MG, QD
     Dates: start: 20120322
  15. ASPIRIN [Concomitant]
  16. METFORMIN [Concomitant]
     Dosage: 500 MG, BID
     Dates: start: 20120601
  17. ATORVASTATIN [Concomitant]
     Dosage: 80 MG, QD
     Dates: start: 20120322
  18. LAMOTRIGINE [Concomitant]
     Dosage: 200 MG, QD
     Dates: start: 20120322
  19. ZOLPIDEM [Concomitant]
     Dosage: 10 MG, QD
     Dates: start: 20120419
  20. TRAZODONE HYDROCHLORIDE [Concomitant]
     Dosage: 100 MG, QD
     Dates: start: 20120322
  21. TOPIRAMATE [Concomitant]
     Dosage: 100 MG, QD
     Dates: start: 20120322
  22. HYDROCODONE [Concomitant]
  23. ULTRAM [Concomitant]
  24. TASIGNA [Suspect]
     Dosage: 200 MG, BID
     Dates: start: 20120322
  25. TASIGNA [Suspect]
     Dosage: 200 MG, BID
     Dates: start: 20120419
  26. GABAPENTIN [Concomitant]
     Dosage: 340 MG, BID
     Dates: start: 20120322
  27. CYMBALTA [Concomitant]
     Dosage: 60 MG, BID
     Dates: start: 20120508
  28. METFORMIN [Concomitant]
     Dosage: 500 MG, BID
     Dates: start: 20120508
  29. LAMOTRIGINE [Concomitant]
     Dosage: 200 MG, QD
     Dates: start: 20120419
  30. LEVOTHYROXINE SODIUM [Concomitant]
     Dosage: 50 UG, QD
     Dates: start: 20120419
  31. ZOLPIDEM [Concomitant]
     Dosage: 10 MG, QD
     Dates: start: 20120601
  32. PRIMIDONE [Concomitant]
     Dosage: 250 MG, BID
     Dates: start: 20120419
  33. TRAZODONE HYDROCHLORIDE [Concomitant]
     Dosage: 100 MG, QD
     Dates: start: 20120601
  34. BUPROPION HCL [Concomitant]
     Dosage: 300 MG, QD
     Dates: start: 20120419
  35. BUPROPION HCL [Concomitant]
     Dosage: 300 MG, QD
     Dates: start: 20120601
  36. IRON [Concomitant]
  37. TASIGNA [Suspect]
     Dosage: 200 MG, BID
     Dates: start: 20120508
  38. TASIGNA [Suspect]
     Dosage: 200 MG, BID
     Dates: start: 20120701
  39. GABAPENTIN [Concomitant]
     Dosage: 340 MG, BID
     Dates: start: 20120508
  40. LOSARTAN POTASSIUM [Concomitant]
     Dosage: 1 DF, QD
     Dates: start: 20120322
  41. LAMOTRIGINE [Concomitant]
     Dosage: 200 MG, QD
     Dates: start: 20120508
  42. LAMOTRIGINE [Concomitant]
     Dosage: 200 MG, QD
     Dates: start: 20120601
  43. LEVOTHYROXINE SODIUM [Concomitant]
     Dosage: 50 UG, QD
     Dates: start: 20120508
  44. CYMBALTA [Concomitant]
     Dosage: 60 MG, BID
     Dates: start: 20120322
  45. CYMBALTA [Concomitant]
     Dosage: 60 MG, BID
     Dates: start: 20120419
  46. METFORMIN [Concomitant]
     Dosage: 500 MG, BID
     Dates: start: 20120322
  47. LOSARTAN POTASSIUM [Concomitant]
     Dosage: 1 DF, QD
     Dates: start: 20120601
  48. ATORVASTATIN [Concomitant]
     Dosage: 80 MG, QD
     Dates: start: 20120601
  49. LEVOTHYROXINE SODIUM [Concomitant]
     Dosage: 50 UG, QD
     Dates: start: 20120601
  50. TRAZODONE HYDROCHLORIDE [Concomitant]
     Dosage: 100 MG, QD
     Dates: start: 20120508
  51. BUPROPION HCL [Concomitant]
     Dosage: 300 MG, QD
     Dates: start: 20120508
  52. TASIGNA [Suspect]
     Indication: CHRONIC MYELOID LEUKAEMIA
     Dosage: 400 MG, UNK
     Dates: start: 20120303
  53. GABAPENTIN [Concomitant]
     Dosage: 340 MG, BID
     Dates: start: 20120601
  54. CYMBALTA [Concomitant]
     Dosage: 60 MG, BID
     Dates: start: 20120601
  55. ATORVASTATIN [Concomitant]
     Dosage: 80 MG, QD
     Dates: start: 20120508
  56. ZOLPIDEM [Concomitant]
     Dosage: 10 MG, QD
     Dates: start: 20120508
  57. PRIMIDONE [Concomitant]
     Dosage: 250 MG, BID
     Dates: start: 20120322

REACTIONS (1)
  - MALAISE [None]
